FAERS Safety Report 7914356-6 (Version None)
Quarter: 2011Q4

REPORT INFORMATION
  Report Type: 
  Country: None (occurrence: None)
  Receive Date: 20111115
  Receipt Date: 20111107
  Transmission Date: 20120403
  Serious: Yes (Hospitalization)
  Sender: FDA-Public Use
  Company Number: FR-MPIJNJ-2011-04440

PATIENT

DRUGS (5)
  1. VANCOMYCIN [Concomitant]
  2. DEXAMETHASONE [Concomitant]
     Indication: MULTIPLE MYELOMA
  3. BACTRIM [Concomitant]
     Indication: INFECTION
  4. VELCADE [Suspect]
     Indication: MULTIPLE MYELOMA
     Dosage: 2.4 MG, UNK
     Route: 042
     Dates: start: 20110819
  5. REVLIMID [Concomitant]
     Indication: MULTIPLE MYELOMA

REACTIONS (4)
  - ACUTE RESPIRATORY DISTRESS SYNDROME [None]
  - INAPPROPRIATE SCHEDULE OF DRUG ADMINISTRATION [None]
  - GENERAL PHYSICAL HEALTH DETERIORATION [None]
  - INFECTION [None]
